FAERS Safety Report 9656096 (Version 1)
Quarter: 2013Q4

REPORT INFORMATION
  Report Type: Report from Study
  Country: ID (occurrence: ID)
  Receive Date: 20131030
  Receipt Date: 20131030
  Transmission Date: 20140711
  Serious: Yes (Death, Other)
  Sender: FDA-Public Use
  Company Number: PHHY2013ID122161

PATIENT
  Age: 71 Year
  Sex: Male

DRUGS (1)
  1. GLIVEC [Suspect]
     Indication: CHRONIC MYELOID LEUKAEMIA
     Dosage: 100 MG, 4 X 1
     Route: 048

REACTIONS (5)
  - Death [Fatal]
  - Lung neoplasm malignant [Unknown]
  - Chronic myeloid leukaemia [Unknown]
  - Abdominal pain [Unknown]
  - Myalgia [Unknown]
